FAERS Safety Report 9455736 (Version 9)
Quarter: 2016Q1

REPORT INFORMATION
  Report Type: Report from Study
  Country: US (occurrence: US)
  Receive Date: 20130813
  Receipt Date: 20160205
  Transmission Date: 20160526
  Serious: Yes (Hospitalization, Other)
  Sender: FDA-Public Use
  Company Number: US-SANOFI-AVENTIS-2013SA080467

PATIENT
  Age: 49 Year
  Sex: Female

DRUGS (5)
  1. AUBAGIO [Suspect]
     Active Substance: TERIFLUNOMIDE
     Indication: RELAPSING-REMITTING MULTIPLE SCLEROSIS
     Dosage: DOSE: 7 AND 14 MG
     Route: 048
     Dates: start: 20130808
  2. AUBAGIO [Suspect]
     Active Substance: TERIFLUNOMIDE
     Indication: RELAPSING-REMITTING MULTIPLE SCLEROSIS
     Dosage: DOSE: 7 AND 14 MG
     Route: 048
     Dates: start: 20130429
  3. AMPYRA [Concomitant]
     Active Substance: DALFAMPRIDINE
     Dates: start: 20130308
  4. CITALOPRAM [Concomitant]
     Active Substance: CITALOPRAM HYDROBROMIDE
  5. AUBAGIO [Suspect]
     Active Substance: TERIFLUNOMIDE
     Indication: RELAPSING-REMITTING MULTIPLE SCLEROSIS
     Route: 048
     Dates: start: 20130308, end: 20130428

REACTIONS (21)
  - Sepsis [Unknown]
  - Drug dose omission [Unknown]
  - Liver function test abnormal [Unknown]
  - Cognitive disorder [Unknown]
  - Dizziness [Unknown]
  - Rehabilitation therapy [Unknown]
  - Tremor [Unknown]
  - Thinking abnormal [Unknown]
  - Mobility decreased [Unknown]
  - Clostridium difficile sepsis [Unknown]
  - Blood thyroid stimulating hormone decreased [Unknown]
  - Speech disorder [Unknown]
  - Hypermetabolism [Unknown]
  - Alopecia [Unknown]
  - Malaise [Unknown]
  - Disability [Unknown]
  - Peripheral swelling [Unknown]
  - Migraine [Recovered/Resolved]
  - Urinary tract infection [Unknown]
  - Multiple sclerosis [Unknown]
  - Confusional state [Unknown]

NARRATIVE: CASE EVENT DATE: 2014
